FAERS Safety Report 8597490-X (Version None)
Quarter: 2012Q3

REPORT INFORMATION
  Report Type: 
  Country: None (occurrence: None)
  Receive Date: 20120802
  Receipt Date: 20120717
  Transmission Date: 20120928
  Serious: Yes (Death, Other)
  Sender: FDA-Public Use
  Company Number: TPA2012A05139

PATIENT
  Age: 74 Year
  Sex: Male

DRUGS (6)
  1. PRANDIN (DEFLAZACORT) [Concomitant]
  2. DIABETA (GLIBENCLA [Concomitant]
  3. METFFORMIN HYDROCHLORIDE [Concomitant]
  4. JANUVIA [Concomitant]
  5. AMARYL [Concomitant]
  6. ACTOS [Suspect]
     Indication: TYPE 2 DIABETES MELLITUS
     Dosage: 30 MG
     Dates: start: 20070725, end: 20081116

REACTIONS (1)
  - BLADDER TRANSITIONAL CELL CARCINOMA [None]
